FAERS Safety Report 5512425-1 (Version None)
Quarter: 2007Q4

REPORT INFORMATION
  Report Type: 
  Country: None (occurrence: None)
  Receive Date: 20071112
  Receipt Date: 20061030
  Transmission Date: 20080405
  Serious: No
  Sender: FDA-Public Use
  Company Number: A0625355A

PATIENT
  Age: 75 Year
  Sex: Female

DRUGS (5)
  1. AVANDAMET [Suspect]
     Route: 048
     Dates: start: 20061026
  2. LIPITOR [Concomitant]
  3. M.V.I. [Concomitant]
  4. NEXIUM [Concomitant]
  5. CLONIDINE [Concomitant]

REACTIONS (2)
  - ASTHENIA [None]
  - SLUGGISHNESS [None]
